FAERS Safety Report 10748128 (Version 1)
Quarter: 2015Q1

REPORT INFORMATION
  Report Type: Spontaneous
  Country: JP (occurrence: JP)
  Receive Date: 20150129
  Receipt Date: 20150129
  Transmission Date: 20150721
  Serious: Yes (Death, Life-Threatening, Other)
  Sender: FDA-Public Use
  Company Number: JP-ASTRAZENECA-2015SE08718

PATIENT
  Age: 25 Year
  Sex: Male

DRUGS (8)
  1. ABILIFY [Suspect]
     Active Substance: ARIPIPRAZOLE
     Route: 048
  2. LANDSEN [Concomitant]
     Active Substance: CLONAZEPAM
  3. TRAZODONE HYDROCHLORIDE. [Concomitant]
     Active Substance: TRAZODONE HYDROCHLORIDE
  4. RISPERDAL [Suspect]
     Active Substance: RISPERIDONE
     Route: 048
  5. BENZALIN [Concomitant]
     Active Substance: NITRAZEPAM
  6. AKINETON [Concomitant]
     Active Substance: BIPERIDEN HYDROCHLORIDE
  7. WYPAX [Concomitant]
     Active Substance: LORAZEPAM
  8. SEROQUEL [Suspect]
     Active Substance: QUETIAPINE FUMARATE
     Route: 048

REACTIONS (3)
  - Hypertriglyceridaemia [Fatal]
  - Pancreatitis acute [Fatal]
  - Diabetes mellitus inadequate control [Fatal]
